FAERS Safety Report 5767568-4 (Version None)
Quarter: 2008Q2

REPORT INFORMATION
  Report Type: 
  Country: None (occurrence: None)
  Receive Date: 20080611
  Receipt Date: 20080611
  Transmission Date: 20081010
  Serious: Yes (Hospitalization)
  Sender: FDA-Public Use
  Company Number: None

PATIENT
  Age: 91 Year
  Sex: Male
  Weight: 84 kg

DRUGS (2)
  1. MEPERIDINE HCL [Suspect]
     Dosage: 75 MG ONCE IV
     Route: 042
     Dates: start: 20080402, end: 20080402
  2. MIDAZOLAM HCL [Suspect]
     Dosage: 5 MG ONCE IV
     Route: 042
     Dates: start: 20080403, end: 20080403

REACTIONS (3)
  - DEPRESSED LEVEL OF CONSCIOUSNESS [None]
  - POST PROCEDURAL COMPLICATION [None]
  - SEDATION [None]
